FAERS Safety Report 9587609 (Version 1)
Quarter: 2013Q4

REPORT INFORMATION
  Report Type: Spontaneous
  Country: US (occurrence: US)
  Receive Date: 20131003
  Receipt Date: 20131003
  Transmission Date: 20140711
  Serious: Yes (Other)
  Sender: FDA-Public Use
  Company Number: US-BAYER-2013-116917

PATIENT
  Age: 52 Year
  Sex: Female

DRUGS (4)
  1. AVELOX [Suspect]
     Indication: SINUSITIS BACTERIAL
     Dosage: 400 MG, QD
     Route: 048
     Dates: start: 20130924, end: 20130925
  2. CIPRO [Suspect]
     Dosage: UNK
  3. LEXAPRO [Concomitant]
  4. HYDROCHLOROTHIAZID LECIVA [Concomitant]

REACTIONS (10)
  - Feeling abnormal [Recovering/Resolving]
  - Drug hypersensitivity [Recovering/Resolving]
  - Dysphemia [Recovering/Resolving]
  - Swollen tongue [Recovering/Resolving]
  - Pharyngeal oedema [Recovering/Resolving]
  - Muscle twitching [Recovering/Resolving]
  - Formication [Recovering/Resolving]
  - Photophobia [Recovering/Resolving]
  - Fatigue [Recovering/Resolving]
  - Fear [None]
